FAERS Safety Report 23178488 (Version 1)
Quarter: 2023Q4

REPORT INFORMATION
  Report Type: Spontaneous
  Country: US (occurrence: None)
  Receive Date: 20231107
  Receipt Date: 20231107
  Transmission Date: 20240110
  Serious: Yes (Other)
  Sender: FDA-Public Use
  Company Number: None

PATIENT
  Sex: Female

DRUGS (1)
  1. CIMZIA [Suspect]
     Active Substance: CERTOLIZUMAB PEGOL
     Indication: Rheumatoid arthritis
     Dosage: OTHER QUANTITY : 2 X 200 MG/ML;?OTHER FREQUENCY : EVERY 2 WEEKS;?
     Route: 058
     Dates: start: 20190813

REACTIONS (3)
  - Surgery [None]
  - Intentional dose omission [None]
  - Rheumatoid arthritis [None]
